FAERS Safety Report 9877921 (Version 3)
Quarter: 2014Q3

REPORT INFORMATION
  Report Type: Spontaneous
  Country: US (occurrence: US)
  Receive Date: 20140206
  Receipt Date: 20140728
  Transmission Date: 20150326
  Serious: Yes (Hospitalization, Disabling)
  Sender: FDA-Public Use
  Company Number: US-009507513-1402USA002188

PATIENT
  Sex: Female
  Weight: 69.39 kg

DRUGS (1)
  1. NUVARING [Suspect]
     Active Substance: ETHINYL ESTRADIOL\ETONOGESTREL
     Indication: CONTRACEPTION
     Dosage: UNK
     Route: 067
     Dates: start: 201104, end: 20130425

REACTIONS (7)
  - Thrombosis [Unknown]
  - Red blood cell sedimentation rate increased [Unknown]
  - Intracranial venous sinus thrombosis [Unknown]
  - Dizziness [Recovered/Resolved]
  - Deep vein thrombosis [Unknown]
  - Leukocytosis [Unknown]
  - Hyperbilirubinaemia [Unknown]

NARRATIVE: CASE EVENT DATE: 201210
